FAERS Safety Report 13627904 (Version 1)
Quarter: 2017Q2

REPORT INFORMATION
  Report Type: Spontaneous
  Country: US (occurrence: US)
  Receive Date: 20170607
  Receipt Date: 20170607
  Transmission Date: 20170830
  Serious: Yes (Other)
  Sender: FDA-Public Use
  Company Number: US-OMEROS CORPORATION-2017OME00007

PATIENT
  Age: 69 Year
  Sex: Female
  Weight: 113.38 kg

DRUGS (40)
  1. VALIUM [Concomitant]
     Active Substance: DIAZEPAM
     Indication: CATARACT OPERATION
     Dosage: 5 MG, UNK
     Route: 048
     Dates: start: 20170427, end: 20170427
  2. VALIUM [Concomitant]
     Active Substance: DIAZEPAM
     Indication: INTRAOCULAR LENS IMPLANT
  3. GATIFLOXACIN. [Concomitant]
     Active Substance: GATIFLOXACIN
     Indication: INTRAOCULAR LENS IMPLANT
  4. PHENYLEPHRINE [Concomitant]
     Active Substance: PHENYLEPHRINE\PHENYLEPHRINE HYDROCHLORIDE
     Indication: INTRAOCULAR LENS IMPLANT
  5. METHOTREXATE. [Concomitant]
     Active Substance: METHOTREXATE
     Dosage: 15 UNK, 1X/WEEK
  6. GATIFLOXACIN. [Concomitant]
     Active Substance: GATIFLOXACIN
     Indication: CATARACT OPERATION
     Dosage: 1 DROP EVERY 15 MINUTES X2
     Dates: start: 20170427, end: 20170427
  7. PROVISC [Concomitant]
     Indication: INTRAOCULAR LENS IMPLANT
  8. XYLOCAINE MPF [Concomitant]
     Active Substance: LIDOCAINE HYDROCHLORIDE
     Indication: INTRAOCULAR LENS IMPLANT
  9. NEXIUM [Concomitant]
     Active Substance: ESOMEPRAZOLE MAGNESIUM
     Dosage: 40 MG, 1X/DAY
  10. PRAMICSOL [Concomitant]
     Dosage: 0.25 MG, AT BEDTIME AS NEEDED
     Route: 048
  11. TROPICAMIDE. [Concomitant]
     Active Substance: TROPICAMIDE
     Indication: INTRAOCULAR LENS IMPLANT
  12. TETRACAINE. [Concomitant]
     Active Substance: TETRACAINE
     Indication: CATARACT OPERATION
     Dosage: UNK
     Dates: start: 20170427, end: 20170427
  13. TETRACAINE. [Concomitant]
     Active Substance: TETRACAINE
     Indication: INTRAOCULAR LENS IMPLANT
  14. ZOFRAN [Concomitant]
     Active Substance: ONDANSETRON HYDROCHLORIDE
     Dosage: 4 MG, UNK
     Route: 042
     Dates: start: 20170427, end: 20170427
  15. FENTANYL. [Concomitant]
     Active Substance: FENTANYL
     Indication: CATARACT OPERATION
     Dosage: 2 ML, AS NEEDED
     Dates: start: 20170427, end: 20170427
  16. OMIDRIA [Suspect]
     Active Substance: KETOROLAC\PHENYLEPHRINE
     Indication: CATARACT OPERATION
     Dosage: 4 ML, ONCE
     Route: 031
     Dates: start: 20170427, end: 20170511
  17. LACTATED RINGERS [Concomitant]
     Active Substance: CALCIUM CHLORIDE\POTASSIUM CHLORIDE\SODIUM CHLORIDE\SODIUM LACTATE
     Indication: CATARACT OPERATION
     Dosage: 500 ML, UNK
     Dates: start: 20170427, end: 20170427
  18. BACTERIOSTATIC SODIUM CHLORIDE [Concomitant]
     Active Substance: SODIUM CHLORIDE
     Indication: INTRAOCULAR LENS IMPLANT
  19. SINGULAIR [Concomitant]
     Active Substance: MONTELUKAST SODIUM
     Dosage: 10 MG, UNK
     Route: 048
  20. PROAIR HFA [Concomitant]
     Active Substance: ALBUTEROL SULFATE
     Dosage: 2 DOSAGE UNITS, AS NEEDED
  21. HCTZ [Concomitant]
     Active Substance: HYDROCHLOROTHIAZIDE
     Dosage: 37.5 MG, 1X/DAY
  22. LACTATED RINGERS [Concomitant]
     Active Substance: CALCIUM CHLORIDE\POTASSIUM CHLORIDE\SODIUM CHLORIDE\SODIUM LACTATE
     Indication: INTRAOCULAR LENS IMPLANT
  23. BUPIVICAINE [Concomitant]
     Active Substance: BUPIVACAINE
     Indication: CATARACT OPERATION
     Dosage: 1 DROP, 3X/DAY EVERY 5 MINUTES X3
     Dates: start: 20170427, end: 20170427
  24. BUPIVICAINE [Concomitant]
     Active Substance: BUPIVACAINE
     Indication: INTRAOCULAR LENS IMPLANT
  25. PROVISC [Concomitant]
     Indication: CATARACT OPERATION
     Dosage: UNK
     Dates: start: 20170427, end: 20170427
  26. VERSED [Concomitant]
     Active Substance: MIDAZOLAM HYDROCHLORIDE
     Indication: CATARACT OPERATION
     Dosage: 2 MG, UNK
     Route: 042
     Dates: start: 20170427, end: 20170427
  27. FENTANYL. [Concomitant]
     Active Substance: FENTANYL
     Indication: INTRAOCULAR LENS IMPLANT
  28. BACTERIOSTATIC SODIUM CHLORIDE [Concomitant]
     Active Substance: SODIUM CHLORIDE
     Indication: CATARACT OPERATION
     Dosage: 500 ML, UNK
     Dates: start: 20170427, end: 20170427
  29. VITAMIN D [Concomitant]
     Active Substance: CHOLECALCIFEROL
     Dosage: 50000 U, 1X/WEEK
  30. TROPICAMIDE. [Concomitant]
     Active Substance: TROPICAMIDE
     Indication: CATARACT OPERATION
     Dosage: 1 DROP, 2X/DAY EVERY 15 MINUTES X2
     Dates: start: 20170427, end: 20170427
  31. CYCLOPENTOLATE. [Concomitant]
     Active Substance: CYCLOPENTOLATE
     Indication: INTRAOCULAR LENS IMPLANT
  32. XYLOCAINE MPF [Concomitant]
     Active Substance: LIDOCAINE HYDROCHLORIDE
     Indication: CATARACT OPERATION
     Dosage: 1 ML, UNK
     Dates: start: 20170427, end: 20170427
  33. CYCLOPENTOLATE. [Concomitant]
     Active Substance: CYCLOPENTOLATE
     Indication: CATARACT OPERATION
     Dosage: 1 DROP, 2X/DAY EVERY 15 MINUTES X2
     Dates: start: 20170427, end: 20170427
  34. VERSED [Concomitant]
     Active Substance: MIDAZOLAM HYDROCHLORIDE
     Indication: INTRAOCULAR LENS IMPLANT
  35. OMIDRIA [Suspect]
     Active Substance: KETOROLAC\PHENYLEPHRINE
     Indication: INTRAOCULAR LENS IMPLANT
  36. LEVOTHYROXINE. [Concomitant]
     Active Substance: LEVOTHYROXINE
     Dosage: 75 ?G, 1X/DAY
  37. POTASSIUM CHLORIDE. [Concomitant]
     Active Substance: POTASSIUM CHLORIDE
     Dosage: 10 MEQ, 1X/DAY
  38. SPIRIVA [Concomitant]
     Active Substance: TIOTROPIUM BROMIDE MONOHYDRATE
     Dosage: UNK, 1X/DAY
  39. LASIX [Concomitant]
     Active Substance: FUROSEMIDE
     Dosage: 20 MG, 1X/DAY
  40. PHENYLEPHRINE [Concomitant]
     Active Substance: PHENYLEPHRINE\PHENYLEPHRINE HYDROCHLORIDE
     Indication: CATARACT OPERATION
     Dosage: 1 DROP, 2X/DAY EVERY 15 MINUTES X2
     Dates: start: 20170427, end: 20170427

REACTIONS (1)
  - Endophthalmitis [Unknown]

NARRATIVE: CASE EVENT DATE: 20170501
